FAERS Safety Report 9388115 (Version 3)
Quarter: 2013Q3

REPORT INFORMATION
  Report Type: Report from Study
  Country: US (occurrence: US)
  Receive Date: 20130708
  Receipt Date: 20130911
  Transmission Date: 20140515
  Serious: No
  Sender: FDA-Public Use
  Company Number: US-VERTEX PHARMACEUTICALS INC-2013-007729

PATIENT
  Age: 54 Year
  Sex: Female
  Weight: 103 kg

DRUGS (4)
  1. VX-950 (TELAPREVIR) [Suspect]
     Indication: HEPATITIS C
     Dosage: 750 MG, TID
     Route: 048
     Dates: start: 20130628
  2. COPEGUS [Suspect]
     Indication: HEPATITIS C
     Dosage: 600 MG AM, 400 MG PM
     Route: 048
     Dates: start: 20130628
  3. PEGASYS [Suspect]
     Indication: HEPATITIS C
     Dosage: 180 ?G, QW
     Route: 058
     Dates: start: 20130628
  4. ATIVAN [Concomitant]
     Indication: ANXIETY
     Dosage: 0.5 MG, TID
     Route: 048

REACTIONS (6)
  - Headache [Not Recovered/Not Resolved]
  - Chills [Recovered/Resolved]
  - Tremor [Recovered/Resolved]
  - Feeling hot [Recovered/Resolved]
  - Anal haemorrhage [Not Recovered/Not Resolved]
  - Rash papular [Recovered/Resolved]
